FAERS Safety Report 25061449 (Version 2)
Quarter: 2025Q1

REPORT INFORMATION
  Report Type: Spontaneous
  Country: ES (occurrence: ES)
  Receive Date: 20250311
  Receipt Date: 20250317
  Transmission Date: 20250408
  Serious: Yes (Death, Hospitalization, Other)
  Sender: CELLTRION
  Company Number: ES-AMGEN-ESPSP2024177932

PATIENT

DRUGS (9)
  1. BEVACIZUMAB [Suspect]
     Active Substance: BEVACIZUMAB
     Indication: Triple negative breast cancer
     Dosage: TRIWEEKLY
     Route: 065
  2. PACLITAXEL [Suspect]
     Active Substance: PACLITAXEL
     Indication: Triple negative breast cancer
     Dosage: 80 MILLIGRAM/SQ. METER, QWK, 12 CYCLES; WEEKLY
  3. PACLITAXEL [Suspect]
     Active Substance: PACLITAXEL
     Dosage: 80 MILLIGRAM/SQ. METER, QWK; WEEKLY
  4. CAPECITABINE [Suspect]
     Active Substance: CAPECITABINE
     Indication: Breast cancer metastatic
  5. CARBOPLATIN [Concomitant]
     Active Substance: CARBOPLATIN
  6. EPIRUBICIN [Concomitant]
     Active Substance: EPIRUBICIN
  7. CYCLOPHOSPHAMIDE [Concomitant]
     Active Substance: CYCLOPHOSPHAMIDE
  8. ATEZOLIZUMAB [Concomitant]
     Active Substance: ATEZOLIZUMAB
     Dosage: 1200 MILLIGRAM, TRIWEEKLY
     Dates: start: 202202
  9. DEXAMETHASONE [Concomitant]
     Active Substance: DEXAMETHASONE

REACTIONS (5)
  - Death [Fatal]
  - Neurotoxicity [Unknown]
  - Triple negative breast cancer [Unknown]
  - Polyneuropathy [Unknown]
  - Therapeutic product effect incomplete [Unknown]

NARRATIVE: CASE EVENT DATE: 20230901
